FAERS Safety Report 7287731-3 (Version None)
Quarter: 2011Q1

REPORT INFORMATION
  Report Type: 
  Country: None (occurrence: None)
  Receive Date: 20110211
  Receipt Date: 20110203
  Transmission Date: 20110831
  Serious: Yes (Hospitalization)
  Sender: FDA-Public Use
  Company Number: US-B.I. PHARMACEUTICALS,INC./RIDGEFIELD-2011-BP-02088BP

PATIENT
  Sex: Female
  Weight: 59.874 kg

DRUGS (6)
  1. MICARDIS [Suspect]
     Route: 065
     Dates: start: 20070101, end: 20100101
  2. RADIOACTIVE IODINE [Suspect]
     Dates: start: 19930101
  3. CALCIUM ACETATE [Suspect]
     Indication: BLOOD PHOSPHORUS INCREASED
     Dates: start: 20100801
  4. FOSINOPRIL SODIUM [Suspect]
  5. SYNTHROID [Suspect]
     Indication: BASEDOW'S DISEASE
     Dosage: 88 MG
     Route: 065
     Dates: start: 19950101
  6. AMLODIPINE [Concomitant]

REACTIONS (9)
  - RENAL FAILURE ACUTE [None]
  - BLOOD URINE [None]
  - SOMNOLENCE [None]
  - MENIERE'S DISEASE [None]
  - RENAL ATROPHY [None]
  - BLOOD PHOSPHORUS INCREASED [None]
  - FULL BLOOD COUNT DECREASED [None]
  - PAIN [None]
  - ABDOMINAL PAIN [None]
